FAERS Safety Report 24039608 (Version 1)
Quarter: 2024Q3

REPORT INFORMATION
  Report Type: Spontaneous
  Country: CN (occurrence: CN)
  Receive Date: 20240702
  Receipt Date: 20240702
  Transmission Date: 20241017
  Serious: Yes (Other)
  Sender: NOVARTIS
  Company Number: CN-002147023-NVSC2024CN134222

PATIENT
  Age: 50 Year

DRUGS (2)
  1. IMATINIB [Suspect]
     Active Substance: IMATINIB
     Indication: Spindle cell sarcoma
     Dosage: 400 MG
     Route: 048
     Dates: start: 202205
  2. SUNITINIB [Suspect]
     Active Substance: SUNITINIB
     Indication: Spindle cell sarcoma
     Dosage: 50 MG
     Route: 065

REACTIONS (3)
  - Spindle cell sarcoma [Unknown]
  - Malignant neoplasm progression [Unknown]
  - Product use in unapproved indication [Unknown]
